FAERS Safety Report 5848407-X (Version None)
Quarter: 2008Q3

REPORT INFORMATION
  Report Type: 
  Country: None (occurrence: None)
  Receive Date: 20080814
  Receipt Date: 20080801
  Transmission Date: 20090109
  Serious: Yes (Other)
  Sender: FDA-Public Use
  Company Number: DSM-2008-00715

PATIENT
  Age: 69 Year
  Sex: Female

DRUGS (2)
  1. MESAR (OLMESARTAN MEDOXOMIL) (10 MILLIGRAM, TABLET) (OLMESARTAN MEDOXO [Suspect]
     Indication: HYPERTENSION
     Dosage: 10 MG (10 MG, 1 IN 1 D) ORAL
     Route: 048
     Dates: start: 20080425, end: 20080509
  2. METOPROLOL TARTRATE [Concomitant]

REACTIONS (2)
  - DIARRHOEA [None]
  - TINNITUS [None]
